FAERS Safety Report 9723804 (Version 1)
Quarter: 2013Q4

REPORT INFORMATION
  Report Type: Spontaneous
  Country: CH (occurrence: CH)
  Receive Date: 20131202
  Receipt Date: 20131202
  Transmission Date: 20140711
  Serious: Yes (Other)
  Sender: FDA-Public Use
  Company Number: CH-ROXANE LABORATORIES, INC.-2013-RO-01877RO

PATIENT
  Age: 66 Year
  Sex: Female

DRUGS (7)
  1. MORPHINE [Suspect]
     Indication: ABDOMINAL PAIN
     Dosage: 60 MG
     Route: 048
  2. METHYLNALTREXONE [Suspect]
     Indication: CONSTIPATION
     Dosage: 8 MG
     Route: 058
  3. ACETYLSALICYLIC ACID [Concomitant]
     Dosage: 100 MG
  4. OXAZEPAM [Concomitant]
     Dosage: 15 MG
  5. FONDAPARINUX [Concomitant]
     Dosage: 2.5 MG
     Route: 058
  6. PICOSULFATE [Concomitant]
     Dosage: 20 MG
  7. IPRATROPIUM/SALBUTAMOL [Concomitant]
     Route: 055

REACTIONS (2)
  - Drug intolerance [Recovered/Resolved]
  - Constipation [Recovered/Resolved]
